FAERS Safety Report 4437581-8 (Version None)
Quarter: 2004Q3

REPORT INFORMATION
  Report Type: 
  Country: None (occurrence: None)
  Receive Date: 20040827
  Receipt Date: 20040816
  Transmission Date: 20050211
  Serious: Yes (Other)
  Sender: FDA-Public Use
  Company Number: HQWYE293907JUN04

PATIENT
  Sex: Female
  Weight: 65.83 kg

DRUGS (6)
  1. PREMARIN [Suspect]
     Indication: HOT FLUSH
     Dosage: 0.625 MG DAILY, ORAL
     Route: 048
     Dates: start: 19931201, end: 20031201
  2. ACETAMINOPHEN [Suspect]
     Dosage: ORAL
     Route: 048
  3. PREMARIN [Suspect]
     Dosage: 0.3 MG DAILY ON DAYS 1 TO 25, ORAL
     Route: 048
     Dates: start: 20031201
  4. BENADRYL [Suspect]
     Dosage: 3 CAPSULES ONE TIME, ORAL
     Route: 048
  5. UNSPECIFIED ANTITUSSIVE (UNSPECIFIED ANTITUSSIVE, UNSPEC) [Suspect]
     Dosage: ORAL
     Route: 048
  6. PROVERA [Concomitant]

REACTIONS (6)
  - ALLERGY TO CHEMICALS [None]
  - DYSPNOEA [None]
  - LOSS OF CONSCIOUSNESS [None]
  - OBSTRUCTIVE AIRWAYS DISORDER [None]
  - STRESS SYMPTOMS [None]
  - URTICARIA [None]
